FAERS Safety Report 7424239-6 (Version None)
Quarter: 2011Q2

REPORT INFORMATION
  Report Type: 
  Country: None (occurrence: None)
  Receive Date: 20110411
  Receipt Date: 20110404
  Transmission Date: 20111010
  Serious: Yes (Other)
  Sender: FDA-Public Use
  Company Number: OSCN-PR-1104S-0102

PATIENT
  Sex: Female

DRUGS (8)
  1. OMNISCAN [Suspect]
     Indication: PRODUCT USED FOR UNKNOWN INDICATION
     Dosage: NR, SINGLE DOSE, INTRAVENOUS
     Route: 042
     Dates: start: 20050510, end: 20050510
  2. MAGNEVIST [Suspect]
     Indication: PRODUCT USED FOR UNKNOWN INDICATION
     Dosage: NR, SINGLE DOSE, INTRAVENOUS
     Route: 042
     Dates: start: 20040911, end: 20040911
  3. MAGNEVIST [Suspect]
     Indication: PRODUCT USED FOR UNKNOWN INDICATION
     Dosage: NR, SINGLE DOSE, INTRAVENOUS
     Route: 042
     Dates: start: 20050510, end: 20050510
  4. MAGNEVIST [Suspect]
     Indication: PRODUCT USED FOR UNKNOWN INDICATION
     Dosage: NR, SINGLE DOSE, INTRAVENOUS
     Route: 042
     Dates: start: 20040917, end: 20040917
  5. MAGNEVIST [Suspect]
     Indication: PRODUCT USED FOR UNKNOWN INDICATION
     Dosage: NR, SINGLE DOSE, INTRAVENOUS
     Route: 042
     Dates: start: 20040916, end: 20040916
  6. MAGNEVIST [Suspect]
     Indication: PRODUCT USED FOR UNKNOWN INDICATION
     Dosage: NR, SINGLE DOSE, INTRAVENOUS
     Route: 042
     Dates: start: 20040918, end: 20040918
  7. MAGNEVIST [Suspect]
     Indication: PRODUCT USED FOR UNKNOWN INDICATION
     Dosage: NR, SINGLE DOSE, INTRAVENOUS
     Route: 042
     Dates: start: 20050517, end: 20050517
  8. MAGNEVIST [Suspect]
     Indication: PRODUCT USED FOR UNKNOWN INDICATION
     Dosage: NR, SINGLE DOSE, INTRAVENOUS
     Route: 042
     Dates: start: 20051005, end: 20051005

REACTIONS (1)
  - NEPHROGENIC SYSTEMIC FIBROSIS [None]
